FAERS Safety Report 7810131-1 (Version None)
Quarter: 2011Q4

REPORT INFORMATION
  Report Type: 
  Country: None (occurrence: None)
  Receive Date: 20111012
  Receipt Date: 20111009
  Transmission Date: 20120403
  Serious: Yes (Hospitalization)
  Sender: FDA-Public Use
  Company Number: US-PFIZER INC-2011240646

PATIENT
  Age: 16 Year
  Sex: Female
  Weight: 90.703 kg

DRUGS (2)
  1. OXCARBAZEPINE [Concomitant]
     Indication: BIPOLAR DISORDER
     Dosage: 300 MG, 3X/DAY
     Route: 048
  2. IBUPROFEN (ADVIL) [Suspect]
     Dosage: 50 TABLETS OF 200MG
     Route: 048
     Dates: start: 20110919, end: 20110919

REACTIONS (5)
  - SUICIDE ATTEMPT [None]
  - PAIN [None]
  - INTENTIONAL OVERDOSE [None]
  - GASTRIC DISORDER [None]
  - ABDOMINAL PAIN UPPER [None]
